FAERS Safety Report 16614019 (Version 4)
Quarter: 2020Q2

REPORT INFORMATION
  Report Type: Spontaneous
  Country: BR (occurrence: BR)
  Receive Date: 20190723
  Receipt Date: 20200403
  Transmission Date: 20200713
  Serious: Yes (Congenital Anomaly)
  Sender: FDA-Public Use
  Company Number: BR-BIOGEN-2019BI00763389

PATIENT
  Age: 0 Year
  Weight: 2.5 kg

DRUGS (4)
  1. AVONEX PEN [Suspect]
     Active Substance: INTERFERON BETA-1A
     Indication: MATERNAL EXPOSURE TIMING UNSPECIFIED
     Route: 064
     Dates: start: 2004, end: 2006
  2. AVONEX PEN [Suspect]
     Active Substance: INTERFERON BETA-1A
  3. AVONEX PEN [Suspect]
     Active Substance: INTERFERON BETA-1A
  4. AVONEX PEN [Suspect]
     Active Substance: INTERFERON BETA-1A

REACTIONS (3)
  - Foetal exposure during pregnancy [Recovered/Resolved]
  - Trisomy 21 [Not Recovered/Not Resolved]
  - Premature baby [Recovered/Resolved]

NARRATIVE: CASE EVENT DATE: 2012
